FAERS Safety Report 6855646-8 (Version None)
Quarter: 2010Q3

REPORT INFORMATION
  Report Type: 
  Country: None (occurrence: None)
  Receive Date: 20100719
  Receipt Date: 20100713
  Transmission Date: 20110219
  Serious: Yes (Disabling)
  Sender: FDA-Public Use
  Company Number: US-BAYER-201017975BCC

PATIENT
  Age: 72 Year
  Sex: Female
  Weight: 89 kg

DRUGS (6)
  1. ALEVE (CAPLET) [Suspect]
     Indication: HERPES ZOSTER
     Dosage: TOTAL DAILY DOSE: 220 MG  UNIT DOSE: 220 MG
     Route: 048
     Dates: start: 20100701
  2. GLIPIZIDE [Concomitant]
     Route: 065
  3. METFORMIN HCL [Concomitant]
     Route: 065
  4. LISINOPRIL [Concomitant]
     Route: 065
  5. LOVASTATIN [Concomitant]
     Route: 065
  6. VICODIN [Concomitant]
     Dosage: TOTAL DAILY DOSE: 2 DF
     Route: 065
     Dates: start: 20100712

REACTIONS (6)
  - ABDOMINAL DISCOMFORT [None]
  - ASTHENIA [None]
  - DEAFNESS [None]
  - DRUG INEFFECTIVE [None]
  - DYSPEPSIA [None]
  - FAECES DISCOLOURED [None]
